FAERS Safety Report 7294789-4 (Version None)
Quarter: 2011Q1

REPORT INFORMATION
  Report Type: 
  Country: None (occurrence: None)
  Receive Date: 20110203
  Receipt Date: 20110118
  Transmission Date: 20110831
  Serious: Yes (Hospitalization, Other)
  Sender: FDA-Public Use
  Company Number: 2010SP026331

PATIENT
  Age: 31 Year
  Sex: Female
  Weight: 82.5547 kg

DRUGS (2)
  1. NUVARING [Suspect]
     Indication: CONTRACEPTION
     Dates: start: 20070531, end: 20080101
  2. SEROQUEL [Suspect]
     Indication: ANXIETY
     Dates: start: 20080101, end: 20080101

REACTIONS (29)
  - SINUS DISORDER [None]
  - MUSCLE TIGHTNESS [None]
  - TREMOR [None]
  - HYDRONEPHROSIS [None]
  - NEPHROLITHIASIS [None]
  - FATIGUE [None]
  - DYSPEPSIA [None]
  - GLUCOSE TOLERANCE IMPAIRED [None]
  - MULTIPLE INJURIES [None]
  - SINUS TACHYCARDIA [None]
  - SEASONAL ALLERGY [None]
  - SNORING [None]
  - ANXIETY [None]
  - PULMONARY EMBOLISM [None]
  - HUMAN PAPILLOMA VIRUS TEST POSITIVE [None]
  - HEADACHE [None]
  - POLLAKIURIA [None]
  - MALAISE [None]
  - CALCULUS URETERIC [None]
  - DEEP VEIN THROMBOSIS [None]
  - ANTITHROMBIN III INCREASED [None]
  - VENOUS RECANALISATION [None]
  - EMBOLISM VENOUS [None]
  - PULMONARY INFARCTION [None]
  - JOINT SPRAIN [None]
  - WEIGHT INCREASED [None]
  - BIPOLAR DISORDER [None]
  - MAJOR DEPRESSION [None]
  - DRUG ABUSE [None]
